FAERS Safety Report 14830050 (Version 1)
Quarter: 2018Q2

REPORT INFORMATION
  Report Type: Spontaneous
  Country: DE (occurrence: KR)
  Receive Date: 20180430
  Receipt Date: 20180430
  Transmission Date: 20180711
  Serious: Yes (Other)
  Sender: FDA-Public Use
  Company Number: DE-EDENBRIDGE PHARMACEUTICALS, LLC-KR-2018EDE000104

PATIENT
  Age: 11 Year
  Sex: Male

DRUGS (3)
  1. PREDNISOLONE SODIUM PHOSPHATE. [Suspect]
     Active Substance: PREDNISOLONE SODIUM PHOSPHATE
     Indication: LANGERHANS^ CELL HISTIOCYTOSIS
     Dosage: UNK
  2. VINCRISTIN [Suspect]
     Active Substance: VINCRISTINE
     Indication: LANGERHANS^ CELL HISTIOCYTOSIS
     Dosage: UNK
  3. DESMOPRESSIN [Concomitant]
     Active Substance: DESMOPRESSIN
     Indication: DIABETES INSIPIDUS
     Dosage: UNK

REACTIONS (1)
  - Xanthogranuloma [Recovering/Resolving]
